FAERS Safety Report 8549397-1 (Version None)
Quarter: 2012Q3

REPORT INFORMATION
  Report Type: 
  Country: None (occurrence: None)
  Receive Date: 20120730
  Receipt Date: 20120716
  Transmission Date: 20120928
  Serious: Yes (Other)
  Sender: FDA-Public Use
  Company Number: FR-ROCHE-1089850

PATIENT
  Age: 82 Year
  Sex: Female

DRUGS (5)
  1. MABTHERA [Suspect]
     Indication: B-CELL LYMPHOMA
  2. METHOTREXATE [Concomitant]
     Indication: B-CELL LYMPHOMA
     Dosage: SIXTEEN
     Route: 050
  3. CYCLOPHOSPHAMIDE [Suspect]
     Indication: B-CELL LYMPHOMA
  4. PREDNISOLONE [Suspect]
     Indication: B-CELL LYMPHOMA
  5. VINCRISTINE [Suspect]
     Indication: B-CELL LYMPHOMA

REACTIONS (3)
  - PYREXIA [None]
  - CONFUSIONAL STATE [None]
  - LYMPHOMA [None]
